FAERS Safety Report 6174782-5 (Version None)
Quarter: 2009Q2

REPORT INFORMATION
  Report Type: 
  Country: None (occurrence: None)
  Receive Date: 20090430
  Receipt Date: 20080923
  Transmission Date: 20091009
  Serious: Yes (Hospitalization)
  Sender: FDA-Public Use
  Company Number: US-ASTRAZENECA-2008UW19984

PATIENT
  Age: 51 Year
  Sex: Male
  Weight: 81.6 kg

DRUGS (4)
  1. NEXIUM [Suspect]
     Indication: GASTROOESOPHAGEAL REFLUX DISEASE
     Route: 048
     Dates: start: 20050101
  2. NEXIUM [Suspect]
     Route: 048
     Dates: end: 20080914
  3. SUDAFED 12 HOUR [Concomitant]
  4. FLONASE [Concomitant]

REACTIONS (3)
  - PANCREATIC DISORDER [None]
  - VOMITING [None]
  - WEIGHT DECREASED [None]
